FAERS Safety Report 17616812 (Version 3)
Quarter: 2020Q2

REPORT INFORMATION
  Report Type: Report from Study
  Country: None (occurrence: US)
  Receive Date: 20200402
  Receipt Date: 20200407
  Transmission Date: 20200713
  Serious: Yes (Hospitalization, Other)
  Sender: FDA-Public Use
  Company Number: US-ABBVIE-20K-163-3347744-00

PATIENT
  Sex: Male

DRUGS (1)
  1. DUOPA [Suspect]
     Active Substance: CARBIDOPA\LEVODOPA
     Indication: PRODUCT USED FOR UNKNOWN INDICATION
     Route: 050
     Dates: start: 20190117

REACTIONS (6)
  - Device issue [Unknown]
  - Drug ineffective [Unknown]
  - Coma [Recovered/Resolved]
  - Metapneumovirus infection [Unknown]
  - Bacterial infection [Unknown]
  - Unresponsive to stimuli [Unknown]
